FAERS Safety Report 16887784 (Version 1)
Quarter: 2019Q4

REPORT INFORMATION
  Report Type: Spontaneous
  Country: US (occurrence: US)
  Receive Date: 20191005
  Receipt Date: 20191005
  Transmission Date: 20200122
  Serious: Yes (Other)
  Sender: FDA-Public Use
  Company Number: US-SHILPA MEDICARE LIMITED-SML-US-2019-00208

PATIENT
  Age: 44 Year
  Sex: Male

DRUGS (11)
  1. FLUOROURACIL. [Suspect]
     Active Substance: FLUOROURACIL
     Route: 065
  2. REGORAFENIB. [Suspect]
     Active Substance: REGORAFENIB
     Indication: COLORECTAL CANCER
     Route: 065
  3. IRINOTECAN, UNKNOWN [Suspect]
     Active Substance: IRINOTECAN
     Indication: COLORECTAL CANCER
     Route: 065
  4. FLUOROURACIL. [Suspect]
     Active Substance: FLUOROURACIL
     Route: 065
  5. TRIFLURIDINE. [Suspect]
     Active Substance: TRIFLURIDINE
     Indication: COLORECTAL CANCER
     Route: 065
  6. OXALIPLATIN. [Suspect]
     Active Substance: OXALIPLATIN
     Indication: COLORECTAL CANCER
     Route: 065
  7. IRINOTECAN, UNKNOWN [Suspect]
     Active Substance: IRINOTECAN
     Route: 065
  8. BEVACIZUMAB. [Suspect]
     Active Substance: BEVACIZUMAB
     Indication: ADENOCARCINOMA OF COLON
     Route: 065
  9. FLUOROURACIL. [Suspect]
     Active Substance: FLUOROURACIL
     Indication: COLORECTAL CANCER
     Route: 065
  10. TIPIRACIL [Suspect]
     Active Substance: TIPIRACIL
     Indication: COLORECTAL CANCER
     Route: 065
  11. PEMBROLIZUMAB. [Suspect]
     Active Substance: PEMBROLIZUMAB
     Indication: COLORECTAL CANCER
     Route: 065

REACTIONS (12)
  - Fatigue [Unknown]
  - Disease progression [Unknown]
  - Metastases to lung [Unknown]
  - Intestinal fistula [Unknown]
  - Drug hypersensitivity [Unknown]
  - Transaminases increased [Recovered/Resolved]
  - Haemoptysis [Recovered/Resolved]
  - Pancytopenia [Unknown]
  - Eyelid ptosis [Unknown]
  - Pelvic neoplasm [Unknown]
  - Horner^s syndrome [Unknown]
  - Herpes zoster [Recovered/Resolved]
